FAERS Safety Report 16881325 (Version 1)
Quarter: 2019Q4

REPORT INFORMATION
  Report Type: Spontaneous
  Country: US (occurrence: US)
  Receive Date: 20191003
  Receipt Date: 20191003
  Transmission Date: 20200122
  Serious: Yes (Hospitalization, Other)
  Sender: FDA-Public Use
  Company Number: US-AMGEN-USASP2019159326

PATIENT
  Age: 36 Year
  Sex: Male

DRUGS (5)
  1. HECTOROL [Concomitant]
     Active Substance: DOXERCALCIFEROL
     Dosage: UNK
  2. PARSABIV [Suspect]
     Active Substance: ETELCALCETIDE HYDROCHLORIDE
     Dosage: 5 MILLIGRAM
     Route: 065
     Dates: end: 20190712
  3. PARSABIV [Suspect]
     Active Substance: ETELCALCETIDE HYDROCHLORIDE
     Indication: PRODUCT USED FOR UNKNOWN INDICATION
     Dosage: UNK
     Route: 065
     Dates: start: 201902
  4. CALCITRIOL. [Concomitant]
     Active Substance: CALCITRIOL
     Dosage: UNK
  5. TUMS [Concomitant]
     Active Substance: CALCIUM CARBONATE

REACTIONS (1)
  - Parathyroidectomy [Unknown]

NARRATIVE: CASE EVENT DATE: 20190717
